FAERS Safety Report 4379349-7 (Version None)
Quarter: 2004Q2

REPORT INFORMATION
  Report Type: 
  Country: None (occurrence: None)
  Receive Date: 20040615
  Receipt Date: 20040609
  Transmission Date: 20050107
  Serious: Yes (Hospitalization)
  Sender: FDA-Public Use
  Company Number: 2004-UK-00561UK

PATIENT
  Age: 59 Year
  Sex: Male
  Weight: 98.5 kg

DRUGS (5)
  1. MORPHINE [Suspect]
     Indication: ABDOMINAL PAIN
     Dosage: 40 MG (20 MG, ) PO
     Route: 048
     Dates: start: 20040120
  2. RAD [Suspect]
     Indication: NEOPLASM
     Dosage: 40 MG (10 MG), PO
     Route: 048
     Dates: start: 20040113
  3. GEMCITABINE (GEMCITABINE) [Concomitant]
  4. DANTRON (DANTRON) [Concomitant]
  5. MOVICOL (NULYTELY) [Concomitant]

REACTIONS (5)
  - ABDOMINAL PAIN [None]
  - ACCIDENTAL EXPOSURE [None]
  - CONSTIPATION [None]
  - INTESTINAL OBSTRUCTION [None]
  - VOMITING [None]
